FAERS Safety Report 13269197 (Version 2)
Quarter: 2017Q1

REPORT INFORMATION
  Report Type: Spontaneous
  Country: US (occurrence: US)
  Receive Date: 20170224
  Receipt Date: 20170227
  Transmission Date: 20170428
  Serious: Yes (Other)
  Sender: FDA-Public Use
  Company Number: US-PFIZER INC-2017075038

PATIENT
  Sex: Female

DRUGS (8)
  1. RANOLAZINE [Interacting]
     Active Substance: RANOLAZINE
     Indication: LONG QT SYNDROME
     Dosage: 2-25 MG/KG/DAY, EVERY 12 HOURS
  2. MAGNESIUM [Concomitant]
     Active Substance: MAGNESIUM
     Indication: LONG QT SYNDROME
     Dosage: UNK
  3. RANOLAZINE [Interacting]
     Active Substance: RANOLAZINE
     Dosage: 60 MG/KG/DAY
  4. ISOPROTERENOL [Concomitant]
     Active Substance: ISOPROTERENOL
     Indication: LONG QT SYNDROME
     Dosage: UNK
  5. MEXILETINE [Concomitant]
     Active Substance: MEXILETINE
     Indication: LONG QT SYNDROME
     Dosage: 30 MG/KG/DAY EVERY 8 HOURS
  6. VERAPAMIL HCL [Suspect]
     Active Substance: VERAPAMIL HYDROCHLORIDE
     Indication: LONG QT SYNDROME
     Dosage: 4 MG/KG/DAY DIVIDED OVER EVERY 8 HOURS
  7. PROPRANOLOL [Concomitant]
     Active Substance: PROPRANOLOL HYDROCHLORIDE
     Indication: LONG QT SYNDROME
     Dosage: 3 MG/KG/DAY EVERY 6 HOURS
  8. RANOLAZINE [Interacting]
     Active Substance: RANOLAZINE
     Dosage: 50 MG/KG, EVERY 6 HOURS

REACTIONS (3)
  - Torsade de pointes [Unknown]
  - Drug interaction [Unknown]
  - Condition aggravated [Unknown]
